FAERS Safety Report 6159482-X (Version None)
Quarter: 2009Q2

REPORT INFORMATION
  Report Type: 
  Country: None (occurrence: None)
  Receive Date: 20090420
  Receipt Date: 20071129
  Transmission Date: 20091009
  Serious: Yes (Hospitalization, Other)
  Sender: FDA-Public Use
  Company Number: US-ASTRAZENECA-2006UW23379

PATIENT
  Age: 12721 Day
  Sex: Male
  Weight: 64.4 kg

DRUGS (20)
  1. SEROQUEL [Suspect]
     Indication: BIPOLAR DISORDER
     Route: 048
  2. SEROQUEL [Suspect]
     Indication: DEPRESSION
     Route: 048
  3. SEROQUEL [Suspect]
     Dosage: 100-200 MG
     Route: 048
     Dates: start: 20011212
  4. SEROQUEL [Suspect]
     Dosage: 100-200 MG
     Route: 048
     Dates: start: 20011212
  5. ZYPREXA [Concomitant]
  6. PAXIL [Concomitant]
  7. TOPROL-XL [Concomitant]
  8. RISPERDAL [Concomitant]
  9. REMERON [Concomitant]
  10. NASONEX [Concomitant]
  11. ATENOLOL [Concomitant]
  12. OXAPROZIN [Concomitant]
  13. AVELOX [Concomitant]
  14. AMLODIPINE [Concomitant]
  15. FLOVENT [Concomitant]
  16. ACCUPRIL [Concomitant]
  17. ASPIRIN [Concomitant]
  18. VALIUM [Concomitant]
  19. TRAZODONE HCL [Concomitant]
  20. CELEXA [Concomitant]

REACTIONS (18)
  - ANXIETY [None]
  - ARRHYTHMIA [None]
  - ARTHRALGIA [None]
  - ARTHRITIS [None]
  - ATRIAL FIBRILLATION [None]
  - BEREAVEMENT REACTION [None]
  - BIPOLAR DISORDER [None]
  - CHEST PAIN [None]
  - DIABETES MELLITUS [None]
  - DYSTHYMIC DISORDER [None]
  - DYSURIA [None]
  - MAJOR DEPRESSION [None]
  - NECK PAIN [None]
  - PANIC ATTACK [None]
  - SINUS TACHYCARDIA [None]
  - SUBSTANCE ABUSE [None]
  - SUICIDAL IDEATION [None]
  - URETHRITIS [None]
